FAERS Safety Report 8268939-7 (Version None)
Quarter: 2012Q2

REPORT INFORMATION
  Report Type: 
  Country: None (occurrence: None)
  Receive Date: 20120409
  Receipt Date: 20120327
  Transmission Date: 20120825
  Serious: Yes (Death, Hospitalization)
  Sender: FDA-Public Use
  Company Number: US-ACTELION-A-CH2012-63351

PATIENT

DRUGS (5)
  1. TRACLEER [Suspect]
     Indication: PULMONARY HYPERTENSION
     Route: 048
  2. EPOPROSTENOL SODIUM [Suspect]
     Indication: PULMONARY HYPERTENSION
     Route: 042
  3. OXYGEN [Concomitant]
  4. SILDENAFIL [Concomitant]
  5. NITRIC OXIDE [Concomitant]

REACTIONS (2)
  - COR PULMONALE [None]
  - RIGHT VENTRICULAR FAILURE [None]
